FAERS Safety Report 8385327 (Version 2)
Quarter: 2015Q1

REPORT INFORMATION
  Report Type: Report from Study
  Country: US (occurrence: US)
  Receive Date: 20120202
  Receipt Date: 20150304
  Transmission Date: 20150721
  Serious: Yes (Death)
  Sender: FDA-Public Use
  Company Number: US-ROCHE-1035753

PATIENT
  Sex: Female

DRUGS (36)
  1. TRASTUZUMAB [Suspect]
     Active Substance: TRASTUZUMAB
     Indication: PRODUCT USED FOR UNKNOWN INDICATION
     Route: 065
  2. CISPLATIN. [Concomitant]
     Active Substance: CISPLATIN
  3. AVASTIN [Suspect]
     Active Substance: BEVACIZUMAB
     Route: 065
  4. AMIKACIN [Concomitant]
     Active Substance: AMIKACIN
  5. LEVAQUIN [Concomitant]
     Active Substance: LEVOFLOXACIN
  6. TAXOL [Concomitant]
     Active Substance: PACLITAXEL
  7. BENADRYL [Concomitant]
     Active Substance: DIPHENHYDRAMINE HYDROCHLORIDE
     Route: 065
  8. REMERON [Concomitant]
     Active Substance: MIRTAZAPINE
  9. BIAXIN [Concomitant]
     Active Substance: CLARITHROMYCIN
  10. CARBOPLATIN. [Concomitant]
     Active Substance: CARBOPLATIN
  11. ONXOL [Concomitant]
     Active Substance: PACLITAXEL
  12. GEMZAR [Concomitant]
     Active Substance: GEMCITABINE HYDROCHLORIDE
     Route: 065
  13. TAXOTERE [Concomitant]
     Active Substance: DOCETAXEL
  14. EMEND [Concomitant]
     Active Substance: APREPITANT
  15. DECADRON [Concomitant]
     Active Substance: DEXAMETHASONE
     Route: 065
  16. MORPHINE [Concomitant]
     Active Substance: MORPHINE
  17. ROXANE [Concomitant]
  18. NEUPOGEN [Concomitant]
     Active Substance: FILGRASTIM
     Route: 065
  19. VORICONAZOLE. [Concomitant]
     Active Substance: VORICONAZOLE
     Route: 065
  20. DOXIL [Concomitant]
     Active Substance: DOXORUBICIN HYDROCHLORIDE
  21. GRANISETRON [Concomitant]
     Active Substance: GRANISETRON
     Route: 065
  22. PROTONIX (UNITED STATES) [Concomitant]
  23. ADVAIR HFA [Concomitant]
     Active Substance: FLUTICASONE PROPIONATE\SALMETEROL XINAFOATE
  24. TAGAMET [Concomitant]
     Active Substance: CIMETIDINE
  25. ATIVAN [Concomitant]
     Active Substance: LORAZEPAM
  26. LORAZEPAM. [Concomitant]
     Active Substance: LORAZEPAM
  27. ABRAXANE [Concomitant]
     Active Substance: PACLITAXEL
  28. PREVACID [Concomitant]
     Active Substance: LANSOPRAZOLE
  29. DEXAMETHASONE. [Concomitant]
     Active Substance: DEXAMETHASONE
     Route: 065
  30. COMPAZINE [Concomitant]
     Active Substance: PROCHLORPERAZINE MALEATE
  31. AVASTIN [Suspect]
     Active Substance: BEVACIZUMAB
     Indication: BREAST CANCER FEMALE
     Route: 065
     Dates: start: 20050412
  32. PREDNISONE. [Concomitant]
     Active Substance: PREDNISONE
     Route: 065
  33. ALOXI [Concomitant]
     Active Substance: PALONOSETRON HYDROCHLORIDE
     Route: 065
  34. TYLENOL [Concomitant]
     Active Substance: ACETAMINOPHEN
     Route: 065
  35. SINGULAIR [Concomitant]
     Active Substance: MONTELUKAST SODIUM
  36. ALPRAZOLAM. [Concomitant]
     Active Substance: ALPRAZOLAM

REACTIONS (17)
  - Fatigue [Unknown]
  - Headache [Unknown]
  - Disease progression [Unknown]
  - Death [Fatal]
  - Pain [Unknown]
  - Anxiety [Unknown]
  - Constipation [Unknown]
  - Nausea [Unknown]
  - Lung infection [Unknown]
  - Asthenia [Unknown]
  - Gait disturbance [Unknown]
  - Dyspnoea [Unknown]
  - Off label use [Unknown]
  - Bronchitis [Unknown]
  - Upper respiratory tract infection [Unknown]
  - Back pain [Unknown]
  - Activities of daily living impaired [Unknown]
